FAERS Safety Report 20500504 (Version 1)
Quarter: 2022Q1

REPORT INFORMATION
  Report Type: Spontaneous
  Country: US (occurrence: US)
  Receive Date: 20220222
  Receipt Date: 20220222
  Transmission Date: 20220423
  Serious: Yes (Hospitalization)
  Sender: FDA-Public Use
  Company Number: US-MYLANLABS-2022M1014117

PATIENT
  Age: 12 Year
  Sex: Female

DRUGS (4)
  1. INSULIN GLARGINE [Suspect]
     Active Substance: INSULIN GLARGINE
     Indication: Type 1 diabetes mellitus
     Dosage: 13 INTERNATIONAL UNIT (13 UNITS NIGHTLY)
     Route: 065
  2. INSULIN GLARGINE [Suspect]
     Active Substance: INSULIN GLARGINE
     Indication: Diabetic ketoacidosis
  3. INSULIN LISPRO [Suspect]
     Active Substance: INSULIN LISPRO
     Indication: Type 1 diabetes mellitus
     Dosage: 1 INTERNATIONAL UNIT (1 UNIT/12 G OF CARBOHYDRATE)
     Route: 065
  4. INSULIN LISPRO [Suspect]
     Active Substance: INSULIN LISPRO
     Indication: Diabetic ketoacidosis

REACTIONS (4)
  - Unmasking of previously unidentified disease [Recovered/Resolved]
  - Neurological symptom [Recovered/Resolved]
  - Streptococcal infection [Recovered/Resolved]
  - Brain abscess [Recovered/Resolved]
